FAERS Safety Report 22009809 (Version 1)
Quarter: 2023Q1

REPORT INFORMATION
  Report Type: Spontaneous
  Country: PK (occurrence: PK)
  Receive Date: 20230220
  Receipt Date: 20230220
  Transmission Date: 20230417
  Serious: Yes (Other)
  Sender: FDA-Public Use
  Company Number: PK-PFIZER INC-PV202300027800

PATIENT
  Age: 26 Year
  Sex: Female

DRUGS (11)
  1. ENBREL [Suspect]
     Active Substance: ETANERCEPT
     Indication: Rheumatoid arthritis
     Dosage: 50 MILLIGRAM, QWK
     Route: 058
  2. DELTACORTRIL [Suspect]
     Active Substance: PREDNISOLONE
     Indication: Product used for unknown indication
     Dosage: 10 MILLIGRAM, QD
     Route: 065
  3. DELTACORTRIL [Suspect]
     Active Substance: PREDNISOLONE
     Dosage: 5 MILLIGRAM, QD  (2 WEEKS)
     Route: 065
  4. DELTACORTRIL [Suspect]
     Active Substance: PREDNISOLONE
     Dosage: UNK, QD (1/2 DAILY FOR 2 WEEKS THEN STOP)
     Route: 065
  5. CAC [Concomitant]
     Dosage: UNK, QD
  6. DEPO-MEDROL [Concomitant]
     Active Substance: METHYLPREDNISOLONE ACETATE
     Dosage: UNK UNK, QD 120; FOR ONCE)
     Route: 058
  7. Dolgina [Concomitant]
     Dosage: UNK UNK, QD
  8. HYDROXYCHLOROQUINE SULFATE [Concomitant]
     Active Substance: HYDROXYCHLOROQUINE SULFATE
     Dosage: UNK, QD
  9. MAXIT [Concomitant]
     Indication: Pain
     Dosage: 75 MILLIGRAM, BID
  10. PANADOL [Concomitant]
     Active Substance: ACETAMINOPHEN
     Dosage: UNK, QD (2+2+2)
  11. SALAZOPYRINE [Concomitant]
     Active Substance: SULFASALAZINE
     Dosage: UNK (500 2+2)

REACTIONS (2)
  - Blood creatinine decreased [Unknown]
  - Red blood cell sedimentation rate increased [Unknown]
